FAERS Safety Report 8547204-4 (Version None)
Quarter: 2012Q3

REPORT INFORMATION
  Report Type: 
  Country: None (occurrence: None)
  Receive Date: 20120727
  Receipt Date: 20120227
  Transmission Date: 20120928
  Serious: No
  Sender: FDA-Public Use
  Company Number: US-ASTRAZENECA-2012SE13569

PATIENT
  Age: 48 Year
  Sex: Male
  Weight: 81.6 kg

DRUGS (9)
  1. SEROQUEL [Suspect]
     Indication: ANXIETY
     Route: 048
     Dates: start: 20111101, end: 20111201
  2. LISINOPRIL [Concomitant]
     Indication: BLOOD PRESSURE ABNORMAL
  3. CELEXA [Concomitant]
  4. SEROQUEL [Suspect]
     Indication: PANIC ATTACK
     Route: 048
     Dates: start: 20111101, end: 20111201
  5. SEROQUEL [Suspect]
     Route: 048
     Dates: start: 20111201
  6. COGENTIN [Concomitant]
  7. SEROQUEL [Suspect]
     Indication: DEPRESSION
     Route: 048
     Dates: start: 20111101, end: 20111201
  8. SEROQUEL [Suspect]
     Route: 048
     Dates: start: 20111201
  9. SEROQUEL [Suspect]
     Route: 048
     Dates: start: 20111201

REACTIONS (2)
  - MUSCLE TWITCHING [None]
  - OFF LABEL USE [None]
